FAERS Safety Report 7972211-X (Version None)
Quarter: 2011Q4

REPORT INFORMATION
  Report Type: 
  Country: None (occurrence: None)
  Receive Date: 20111212
  Receipt Date: 20111201
  Transmission Date: 20120403
  Serious: Yes (Hospitalization)
  Sender: FDA-Public Use
  Company Number: DE-ELI_LILLY_AND_COMPANY-DE201112000437

PATIENT
  Age: 80 Year
  Sex: Female

DRUGS (9)
  1. PANTOPRAZOLE [Concomitant]
  2. ORTOTON                            /00047901/ [Concomitant]
  3. RAMIPLUS STADA [Concomitant]
  4. NALOXONE [Concomitant]
  5. CALCILAC [Concomitant]
  6. FORTEO [Suspect]
     Indication: OSTEOPOROSIS
     Dosage: UNK, QD
     Route: 058
     Dates: start: 20100216
  7. CALCIMAGON                         /00108001/ [Concomitant]
  8. METOCLOPRAMIDE [Concomitant]
  9. ARCOXIA [Concomitant]

REACTIONS (4)
  - HOSPITALISATION [None]
  - SKIN DISCOLOURATION [None]
  - CARPAL TUNNEL SYNDROME [None]
  - INFLAMMATION [None]
